FAERS Safety Report 9916039 (Version 2)
Quarter: 2014Q1

REPORT INFORMATION
  Report Type: Report from Study
  Country: NO (occurrence: NO)
  Receive Date: 20140221
  Receipt Date: 20140303
  Transmission Date: 20141002
  Serious: Yes (Hospitalization)
  Sender: FDA-Public Use
  Company Number: NO-SA-2014SA016205

PATIENT
  Age: 69 Year
  Sex: Male

DRUGS (10)
  1. CABAZITAXEL [Suspect]
     Indication: PROSTATE CANCER
     Dosage: WEEKLY FOR 5 WEEKS FOLLOWED BY ONE WEEK REST
     Route: 042
     Dates: start: 20131119, end: 20131119
  2. CABAZITAXEL [Suspect]
     Indication: PROSTATE CANCER
     Dosage: WEEKLY FOR 5 WEEKS FOLLOWED BY ONE WEEK REST
     Route: 042
     Dates: start: 20140128, end: 20140128
  3. PREDNISONE [Suspect]
     Indication: PROSTATE CANCER
     Route: 065
  4. PREDNISOLON [Concomitant]
  5. PLENDIL [Concomitant]
  6. ALBYL [Concomitant]
  7. CALCIGRAN [Concomitant]
     Dosage: 1000/800 MG QD
  8. ZOLADEX [Concomitant]
     Dosage: EVERY THIRD MONTH
     Route: 058
  9. DENOSUMAB [Concomitant]
     Route: 058
  10. PARACETAMOL [Concomitant]
     Dosage: 1-2 TBL X4?STRENGTH: 500 MG

REACTIONS (1)
  - Transient ischaemic attack [Recovered/Resolved]
